FAERS Safety Report 9439896 (Version 1)
Quarter: 2013Q3

REPORT INFORMATION
  Report Type: Spontaneous
  Country: US (occurrence: US)
  Receive Date: 20130805
  Receipt Date: 20130805
  Transmission Date: 20140515
  Serious: Yes (Death, Hospitalization)
  Sender: FDA-Public Use
  Company Number: US-JNJFOC-20130717819

PATIENT
  Age: 41 Year
  Sex: Male

DRUGS (4)
  1. REMICADE [Suspect]
     Indication: COLITIS ULCERATIVE
     Route: 042
     Dates: start: 20130528
  2. REMICADE [Suspect]
     Indication: COLITIS ULCERATIVE
     Route: 042
     Dates: start: 20120124
  3. IMURAN [Concomitant]
     Indication: COLITIS ULCERATIVE
     Route: 048
  4. SULFASALAZINE [Concomitant]
     Indication: COLITIS ULCERATIVE
     Dosage: 8 TABLETS.
     Route: 048

REACTIONS (1)
  - Cardiac arrest [Fatal]
